FAERS Safety Report 14077798 (Version 3)
Quarter: 2018Q1

REPORT INFORMATION
  Report Type: Spontaneous
  Country: BR (occurrence: BR)
  Receive Date: 20171012
  Receipt Date: 20180201
  Transmission Date: 20180508
  Serious: Yes (Other)
  Sender: FDA-Public Use
  Company Number: BR-AMGEN-BRASP2017142711

PATIENT
  Age: 46 Year
  Sex: Female

DRUGS (3)
  1. ENBREL [Suspect]
     Active Substance: ETANERCEPT
     Dosage: UNK
     Route: 065
     Dates: start: 20171002
  2. ENBREL [Suspect]
     Active Substance: ETANERCEPT
     Indication: PRODUCT USED FOR UNKNOWN INDICATION
     Dosage: 50 MG, 2X/WEEK
     Route: 065
  3. ENBREL [Suspect]
     Active Substance: ETANERCEPT
     Dosage: 50 MG, UNK
     Route: 065

REACTIONS (17)
  - Drug prescribing error [Unknown]
  - Wound haemorrhage [Not Recovered/Not Resolved]
  - Skin exfoliation [Recovered/Resolved]
  - Decreased immune responsiveness [Unknown]
  - Nasopharyngitis [Unknown]
  - Therapeutic response unexpected [Unknown]
  - Wound infection [Not Recovered/Not Resolved]
  - Fatigue [Unknown]
  - Hair growth abnormal [Unknown]
  - Limb injury [Unknown]
  - Wound [Not Recovered/Not Resolved]
  - Dandruff [Unknown]
  - Visual impairment [Unknown]
  - Rhinitis [Unknown]
  - Psoriasis [Unknown]
  - Product storage error [Unknown]
  - Lacrimation increased [Unknown]

NARRATIVE: CASE EVENT DATE: 201710
